FAERS Safety Report 15716228 (Version 2)
Quarter: 2018Q4

REPORT INFORMATION
  Report Type: Spontaneous
  Country: DE (occurrence: DE)
  Receive Date: 20181213
  Receipt Date: 20181224
  Transmission Date: 20190205
  Serious: Yes (Hospitalization)
  Sender: FDA-Public Use
  Company Number: DE-AUROBINDO-AUR-APL-2018-059760

PATIENT
  Age: 75 Year
  Sex: Male
  Weight: 62 kg

DRUGS (8)
  1. FOLINIC ACID SOLUTION FOR INJECTION [Suspect]
     Active Substance: LEUCOVORIN CALCIUM
     Dosage: 730 MILLIGRAM, CYCLICAL
     Route: 042
     Dates: start: 20180924, end: 20180924
  2. FLUOROURACIL. [Suspect]
     Active Substance: FLUOROURACIL
     Indication: RECTAL CANCER
     Dosage: 4422 MG, QCY
     Route: 042
     Dates: start: 20180716, end: 20180716
  3. OXALIPLATIN. [Suspect]
     Active Substance: OXALIPLATIN
     Dosage: 180 MILLIGRAM, CYCLICAL
     Route: 042
     Dates: start: 20180924, end: 20180924
  4. FLUOROURACIL. [Suspect]
     Active Substance: FLUOROURACIL
     Dosage: 4422 MILLIGRAM, CYCLICAL
     Route: 042
     Dates: start: 20180924, end: 20180924
  5. AFLIBERCEPT [Suspect]
     Active Substance: AFLIBERCEPT
     Dosage: 295 MILLIGRAM, CYCLICAL
     Route: 042
     Dates: start: 20180827, end: 20180827
  6. FOLINIC ACID SOLUTION FOR INJECTION [Suspect]
     Active Substance: LEUCOVORIN CALCIUM
     Indication: RECTAL CANCER
     Dosage: UNK UNK, QCY
     Route: 042
     Dates: start: 20180716, end: 20180716
  7. OXALIPLATIN. [Suspect]
     Active Substance: OXALIPLATIN
     Indication: RECTAL CANCER
     Dosage: UNK, QCY
     Route: 042
     Dates: start: 20180716, end: 20180716
  8. AFLIBERCEPT [Suspect]
     Active Substance: AFLIBERCEPT
     Indication: RECTAL CANCER
     Dosage: UNK, QCY
     Route: 042
     Dates: start: 20180716, end: 20180716

REACTIONS (1)
  - Blood potassium increased [Recovered/Resolved]

NARRATIVE: CASE EVENT DATE: 20181115
